FAERS Safety Report 9685432 (Version 1)
Quarter: 2013Q4

REPORT INFORMATION
  Report Type: Spontaneous
  Country: US (occurrence: None)
  Receive Date: 20131112
  Receipt Date: 20131112
  Transmission Date: 20140711
  Serious: No
  Sender: FDA-Public Use
  Company Number: None

PATIENT
  Age: 37 Year
  Sex: Female

DRUGS (1)
  1. BETHEL [Suspect]
     Indication: WEIGHT DECREASED
     Dates: start: 20130901, end: 20131103

REACTIONS (3)
  - Malaise [None]
  - Dizziness [None]
  - Syncope [None]
